FAERS Safety Report 12213521 (Version 1)
Quarter: 2016Q1

REPORT INFORMATION
  Report Type: Spontaneous
  Country: US (occurrence: None)
  Receive Date: 20160325
  Receipt Date: 20160325
  Transmission Date: 20160526
  Serious: No
  Sender: FDA-Public Use
  Company Number: None

PATIENT
  Age: 71 Year
  Sex: Female
  Weight: 58.97 kg

DRUGS (10)
  1. AMITRIPTALINE [Concomitant]
     Active Substance: AMITRIPTYLINE
  2. BIOTINE [Concomitant]
     Active Substance: LACTOPEROXIDASE BOVINE\LYSOZYME HYDROCHLORIDE
  3. COQ10 [Concomitant]
     Active Substance: UBIDECARENONE
  4. XANAX [Concomitant]
     Active Substance: ALPRAZOLAM
  5. BELSOMRA [Suspect]
     Active Substance: SUVOREXANT
     Indication: INSOMNIA
     Dosage: 1 TABLET(S) AT BEDTIME TAKEN BY MOUTH
     Route: 048
  6. FISH OIL [Concomitant]
     Active Substance: FISH OIL
  7. RYTHMOL SR [Concomitant]
     Active Substance: PROPAFENONE HYDROCHLORIDE
  8. RELPAX [Concomitant]
     Active Substance: ELETRIPTAN HYDROBROMIDE
  9. VITAMIN D [Concomitant]
     Active Substance: CHOLECALCIFEROL
  10. BENADRYL [Concomitant]
     Active Substance: DIPHENHYDRAMINE HYDROCHLORIDE

REACTIONS (9)
  - Hallucination [None]
  - Headache [None]
  - Gait disturbance [None]
  - Pseudoparalysis [None]
  - Vomiting [None]
  - Sleep disorder [None]
  - Feeling abnormal [None]
  - Tremor [None]
  - Initial insomnia [None]

NARRATIVE: CASE EVENT DATE: 20160211
